FAERS Safety Report 25383037 (Version 2)
Quarter: 2025Q3

REPORT INFORMATION
  Report Type: Report from Study
  Country: IN (occurrence: IN)
  Receive Date: 20250602
  Receipt Date: 20250802
  Transmission Date: 20251020
  Serious: Yes (Other)
  Sender: ALEXION PHARMACEUTICALS
  Company Number: IN-AstraZeneca-CH-00879289A

PATIENT
  Age: 48 Year
  Sex: Female
  Weight: 41 kg

DRUGS (1)
  1. OLAPARIB [Suspect]
     Active Substance: OLAPARIB

REACTIONS (12)
  - Blindness unilateral [Unknown]
  - Asthenia [Unknown]
  - Bone pain [Unknown]
  - Dyspnoea [Unknown]
  - Gait disturbance [Unknown]
  - Decreased appetite [Unknown]
  - Mouth ulceration [Unknown]
  - Ageusia [Unknown]
  - Vomiting [Unknown]
  - Lung disorder [Unknown]
  - Irritability [Unknown]
  - Sleep disorder [Unknown]

NARRATIVE: CASE EVENT DATE: 20250528
